FAERS Safety Report 5254567-4 (Version None)
Quarter: 2007Q1

REPORT INFORMATION
  Report Type: 
  Country: None (occurrence: None)
  Receive Date: 20070302
  Receipt Date: 20070220
  Transmission Date: 20070707
  Serious: Yes (Disabling)
  Sender: FDA-Public Use
  Company Number: GB-MERCK-0701GBR00088

PATIENT
  Age: 89 Year
  Sex: Female

DRUGS (4)
  1. FOSAMAX [Suspect]
     Route: 048
  2. BENDROFLUMETHIAZIDE [Concomitant]
     Indication: HYPERTENSION
     Route: 065
  3. ASPIRIN [Concomitant]
     Indication: ANTIPLATELET THERAPY
     Route: 065
  4. PREGABALIN [Concomitant]
     Indication: NEURALGIA
     Route: 065

REACTIONS (2)
  - BONE DISORDER [None]
  - NODULE ON EXTREMITY [None]
